FAERS Safety Report 4996761-3 (Version None)
Quarter: 2006Q2

REPORT INFORMATION
  Report Type: 
  Country: None (occurrence: None)
  Receive Date: 20060509
  Receipt Date: 20060424
  Transmission Date: 20061013
  Serious: Yes (Other)
  Sender: FDA-Public Use
  Company Number: US-JNJFOC-20030904437

PATIENT
  Sex: Female
  Weight: 97.52 kg

DRUGS (23)
  1. RISPERDAL [Suspect]
     Route: 048
  2. RISPERDAL [Suspect]
     Route: 048
  3. RISPERDAL [Suspect]
     Route: 048
  4. RISPERDAL [Suspect]
     Route: 048
  5. RISPERDAL [Suspect]
     Route: 048
  6. RISPERDAL [Suspect]
     Route: 048
  7. RISPERDAL [Suspect]
     Indication: SCHIZOAFFECTIVE DISORDER
     Route: 048
  8. ZENICAL [Concomitant]
  9. ARAVA [Concomitant]
  10. DAYPRO [Concomitant]
     Dosage: 600 MG DOSE, ONE IN THE MORNING AND TWO IN THE EVENING.
  11. AMITRIPTYLINE HCL [Concomitant]
  12. AMITRIPTYLINE HCL [Concomitant]
  13. AMITRIPTYLINE HCL [Concomitant]
  14. ATARAX [Concomitant]
  15. OXYCONTIN [Concomitant]
  16. LIMBITROL [Concomitant]
     Dosage: 10-25 MG TWICE DAILY
     Route: 048
  17. LIMBITROL [Concomitant]
     Dosage: 10-25 MG DAILY AT BEDTIME
     Route: 048
  18. LIMBITROL [Concomitant]
     Dosage: 10-20MG TWICE DAILY
     Route: 048
  19. NEURONTIN [Concomitant]
  20. TOPICAL STEROID [Concomitant]
     Indication: PSORIASIS
     Route: 061
  21. PREDNISONE TAB [Concomitant]
  22. PREDNISONE TAB [Concomitant]
  23. CELEBREX [Concomitant]

REACTIONS (24)
  - ABDOMINAL PAIN [None]
  - ACCIDENTAL EXPOSURE [None]
  - ARTHRALGIA [None]
  - COLON ADENOMA [None]
  - DEPRESSED MOOD [None]
  - DIABETES MELLITUS [None]
  - DISTURBANCE IN ATTENTION [None]
  - FIBROMYALGIA [None]
  - HALLUCINATION [None]
  - HEADACHE [None]
  - HEPATIC STEATOSIS [None]
  - INCREASED APPETITE [None]
  - MIGRAINE [None]
  - MUSCLE SPASMS [None]
  - NERVOUSNESS [None]
  - OBESITY [None]
  - PAIN IN EXTREMITY [None]
  - PARANOIA [None]
  - PLANTAR FASCIITIS [None]
  - PSORIATIC ARTHROPATHY [None]
  - RESTLESS LEGS SYNDROME [None]
  - SUICIDAL IDEATION [None]
  - WEIGHT DECREASED [None]
  - WEIGHT INCREASED [None]
